FAERS Safety Report 8612657-X (Version None)
Quarter: 2012Q3

REPORT INFORMATION
  Report Type: 
  Country: None (occurrence: None)
  Receive Date: 20120822
  Receipt Date: 20111114
  Transmission Date: 20120928
  Serious: No
  Sender: FDA-Public Use
  Company Number: US-ASTRAZENECA-2011SE57137

PATIENT
  Age: 64 Year
  Sex: Female
  Weight: 72.6 kg

DRUGS (10)
  1. SYMBICORT [Suspect]
     Dosage: 160/4.5 MCG, TWO INHALATION TWO TIMES DAILY
     Route: 055
     Dates: start: 20110907
  2. SERTRALINE HYDROCHLORIDE [Concomitant]
     Route: 048
     Dates: start: 20110711
  3. BISOPROLOL-HYDRCCHLOROTHIAZIDE [Concomitant]
     Dosage: 2.5/6.25 MG DAILY
     Route: 048
     Dates: start: 20110803
  4. UNIPHYL [Concomitant]
     Route: 048
     Dates: start: 20111020
  5. VENTOLIN HFA [Concomitant]
     Dosage: 108 (90 BASE) MCG/ACT, TWO INHALATION FOUR TIMES DAILY, AS NEEDED
     Route: 055
     Dates: start: 20110506
  6. PROAIR HFA [Concomitant]
     Dosage: 108 (90 BASE) MCG/ACT, FREQUENCY AS NEEDED
     Route: 055
     Dates: start: 20110105
  7. SPIRIVA [Concomitant]
     Route: 055
     Dates: start: 20110711
  8. IPRATROPIUM BROMIDE [Concomitant]
     Dosage: 2 SPRAYS EACH NOSTRIL, TWO TIMES DAILY
     Route: 045
  9. CLOTRIMAZOLE [Concomitant]
     Dosage: 10MG MOUTH AND THROAT, FIVE A DAY X 1 WEEK, AS REQUIRED
  10. LEVOTHYROXINE SODIUM [Concomitant]
     Route: 048
     Dates: start: 20110803

REACTIONS (13)
  - HEADACHE [None]
  - OROPHARYNGEAL PAIN [None]
  - RHINORRHOEA [None]
  - HYPOTHYROIDISM [None]
  - ESSENTIAL HYPERTENSION [None]
  - MIDDLE EAR EFFUSION [None]
  - BRONCHITIS [None]
  - RHINITIS ALLERGIC [None]
  - PRODUCTIVE COUGH [None]
  - ARTHRITIS [None]
  - COUGH [None]
  - ASTHMA [None]
  - DYSPHONIA [None]
